FAERS Safety Report 21713988 (Version 3)
Quarter: 2023Q2

REPORT INFORMATION
  Report Type: Report from Study
  Country: DE (occurrence: None)
  Receive Date: 20221212
  Receipt Date: 20230410
  Transmission Date: 20230722
  Serious: Yes (Hospitalization)
  Sender: FDA-Public Use
  Company Number: DE-ROCHE-3234839

PATIENT
  Age: 48 Year
  Sex: Female
  Weight: 59 kg

DRUGS (19)
  1. ATEZOLIZUMAB [Suspect]
     Active Substance: ATEZOLIZUMAB
     Indication: Triple negative breast cancer
     Dosage: DATE OF LAST DOSE PRIOR TO SAE: 27 OCT 2022
     Route: 041
     Dates: start: 20220719
  2. PACLITAXEL [Suspect]
     Active Substance: PACLITAXEL
     Indication: Triple negative breast cancer
     Dosage: DATE OF LAST DOSE PRIOR TO SAE: 05 OCT 2022
     Route: 041
     Dates: start: 20220719
  3. CARBOPLATIN [Suspect]
     Active Substance: CARBOPLATIN
     Indication: Triple negative breast cancer
     Dosage: DATE OF LAST DOSE PRIOR TO SAE: 05 OCT 2022
     Route: 041
     Dates: start: 20220719
  4. EPIRUBICIN [Suspect]
     Active Substance: EPIRUBICIN
     Indication: Triple negative breast cancer
     Dosage: DATE OF LAST DOSE PRIOR TO SAE: 27 OCT 2022
     Route: 041
     Dates: start: 20221027
  5. CYCLOPHOSPHAMIDE [Suspect]
     Active Substance: CYCLOPHOSPHAMIDE
     Indication: Triple negative breast cancer
     Dosage: DATE OF LAST DOSE PRIOR TO SAE: 27 OCT 2022
     Route: 041
     Dates: start: 20221027
  6. LIPEGFILGRASTIM [Concomitant]
     Active Substance: LIPEGFILGRASTIM
     Dates: start: 20221027, end: 20221028
  7. PFIZER-BIONTECH COVID-19 VACCINE [Concomitant]
     Active Substance: TOZINAMERAN
     Dates: start: 20210607, end: 20210607
  8. PFIZER-BIONTECH COVID-19 VACCINE [Concomitant]
     Active Substance: TOZINAMERAN
     Dates: start: 20211115, end: 20211115
  9. ONDANSETRON [Concomitant]
     Active Substance: ONDANSETRON
     Dates: start: 20220725, end: 20220808
  10. GRANISETRON [Concomitant]
     Active Substance: GRANISETRON
     Dates: start: 20220719, end: 20221005
  11. DEXAMETHASONE [Concomitant]
     Active Substance: DEXAMETHASONE
     Dates: start: 20220719, end: 20221005
  12. DEXAMETHASONE [Concomitant]
     Active Substance: DEXAMETHASONE
     Dates: start: 20221027
  13. CLEMASTINE [Concomitant]
     Active Substance: CLEMASTINE
     Dates: start: 20220819, end: 20221005
  14. OMEGA 3 [Concomitant]
     Active Substance: CAPSAICIN
     Dates: start: 2021
  15. VITAMIN B12 [Concomitant]
     Active Substance: CYANOCOBALAMIN
     Dates: start: 2021
  16. VITAMIN D3 [Concomitant]
     Active Substance: CHOLECALCIFEROL
     Dates: start: 2021
  17. AKYNZEO [Concomitant]
     Dates: start: 20221027
  18. MESNA [Concomitant]
     Active Substance: MESNA
     Dates: start: 20221027
  19. METOCLOPRAMIDE [Concomitant]
     Active Substance: METOCLOPRAMIDE
     Dates: start: 20221027, end: 20221027

REACTIONS (1)
  - Neutrophil count decreased [Recovered/Resolved]

NARRATIVE: CASE EVENT DATE: 20221104
